FAERS Safety Report 19758110 (Version 1)
Quarter: 2021Q3

REPORT INFORMATION
  Report Type: Spontaneous
  Country: US (occurrence: US)
  Receive Date: 20210827
  Receipt Date: 20210827
  Transmission Date: 20211014
  Serious: Yes (Hospitalization, Other)
  Sender: FDA-Public Use
  Company Number: US-TARO-2021TAR00903

PATIENT
  Age: 64 Year
  Sex: Female

DRUGS (1)
  1. TRIAMCINOLONE 0.1% [Suspect]
     Active Substance: TRIAMCINOLONE
     Indication: PSORIASIS
     Dosage: UNK
     Route: 061

REACTIONS (1)
  - Erythrodermic psoriasis [Recovered/Resolved]
